FAERS Safety Report 7779619-6 (Version None)
Quarter: 2011Q3

REPORT INFORMATION
  Report Type: 
  Country: None (occurrence: None)
  Receive Date: 20110927
  Receipt Date: 20110916
  Transmission Date: 20111222
  Serious: Yes (Hospitalization)
  Sender: FDA-Public Use
  Company Number: US-BAYER-201019479NA

PATIENT
  Age: 29 Year
  Sex: Female
  Weight: 108.84 kg

DRUGS (4)
  1. VICODIN [Concomitant]
     Indication: PAIN
  2. YAZ [Suspect]
     Indication: CONTRACEPTION
     Dosage: UNK
     Route: 048
     Dates: start: 20070501, end: 20070701
  3. ZOMIG [Concomitant]
     Indication: MIGRAINE
  4. MIGRANAL [Concomitant]
     Indication: MIGRAINE
     Route: 045

REACTIONS (7)
  - PAIN [None]
  - PAPILLOEDEMA [None]
  - MUSCULAR WEAKNESS [None]
  - CAVERNOUS SINUS THROMBOSIS [None]
  - BLINDNESS [None]
  - BRAIN INJURY [None]
  - INTRACRANIAL VENOUS SINUS THROMBOSIS [None]
